FAERS Safety Report 4510331-2 (Version None)
Quarter: 2004Q4

REPORT INFORMATION
  Report Type: 
  Country: None (occurrence: None)
  Receive Date: 20041122
  Receipt Date: 20041116
  Transmission Date: 20050328
  Serious: Yes (Hospitalization)
  Sender: FDA-Public Use
  Company Number: US-JNJFOC-20041104037

PATIENT
  Age: 80 Year
  Sex: Male

DRUGS (2)
  1. TYLENOL 8 HR EXTENDED RELEASE (ACETAMINOPHN) GELTABS [Suspect]
     Indication: PAIN
     Dates: start: 20040701, end: 20040901
  2. IBUPROFEN [Concomitant]

REACTIONS (2)
  - MALAISE [None]
  - OVERDOSE [None]
